FAERS Safety Report 14326457 (Version 8)
Quarter: 2019Q1

REPORT INFORMATION
  Report Type: Spontaneous
  Country: CA (occurrence: CA)
  Receive Date: 20171227
  Receipt Date: 20190214
  Transmission Date: 20190417
  Serious: Yes (Other)
  Sender: FDA-Public Use
  Company Number: CA-ROCHE-2044448

PATIENT
  Age: 55 Year
  Sex: Female

DRUGS (17)
  1. XOLAIR [Suspect]
     Active Substance: OMALIZUMAB
     Route: 058
     Dates: start: 20180724
  2. XOLAIR [Suspect]
     Active Substance: OMALIZUMAB
     Route: 058
     Dates: start: 20171114
  3. ALVESCO [Suspect]
     Active Substance: CICLESONIDE
     Dosage: REDUCED
     Route: 065
     Dates: start: 201501
  4. ALVESCO [Suspect]
     Active Substance: CICLESONIDE
     Indication: PRODUCT USED FOR UNKNOWN INDICATION
     Route: 065
  5. XOLAIR [Suspect]
     Active Substance: OMALIZUMAB
     Route: 058
     Dates: start: 20170131
  6. XOLAIR [Suspect]
     Active Substance: OMALIZUMAB
     Route: 058
     Dates: start: 20170502
  7. XOLAIR [Suspect]
     Active Substance: OMALIZUMAB
     Route: 058
     Dates: start: 20180403
  8. XOLAIR [Suspect]
     Active Substance: OMALIZUMAB
     Route: 058
     Dates: start: 20181113
  9. ALVESCO [Suspect]
     Active Substance: CICLESONIDE
     Dosage: 2 INHALATION, FOR 1 MONTH
     Route: 055
  10. XOLAIR [Suspect]
     Active Substance: OMALIZUMAB
     Indication: ASTHMA
     Route: 058
     Dates: start: 20140206
  11. XOLAIR [Suspect]
     Active Substance: OMALIZUMAB
     Route: 058
     Dates: start: 20151014
  12. XOLAIR [Suspect]
     Active Substance: OMALIZUMAB
     Route: 058
     Dates: start: 20181211
  13. ALVESCO [Suspect]
     Active Substance: CICLESONIDE
     Dosage: STARTED AGIN AT NORMAL DOSE
     Route: 065
     Dates: start: 20150122
  14. XOLAIR [Suspect]
     Active Substance: OMALIZUMAB
     Route: 058
  15. XOLAIR [Suspect]
     Active Substance: OMALIZUMAB
     Route: 058
     Dates: start: 20161206
  16. XOLAIR [Suspect]
     Active Substance: OMALIZUMAB
     Route: 058
     Dates: start: 20171017
  17. XOLAIR [Suspect]
     Active Substance: OMALIZUMAB
     Route: 058
     Dates: start: 20190108

REACTIONS (25)
  - Productive cough [Unknown]
  - Throat irritation [Not Recovered/Not Resolved]
  - Osteoporosis [Unknown]
  - Injection site haemorrhage [Unknown]
  - Hypoaesthesia [Unknown]
  - Pyrexia [Recovered/Resolved]
  - Influenza [Unknown]
  - Asthenia [Unknown]
  - Dyspnoea [Unknown]
  - Asthma [Recovering/Resolving]
  - Blood pressure increased [Unknown]
  - Muscle rupture [Unknown]
  - Bronchitis [Unknown]
  - Seasonal allergy [Recovered/Resolved]
  - Stress [Unknown]
  - Body temperature decreased [Recovered/Resolved]
  - Blood pressure systolic increased [Unknown]
  - Nasopharyngitis [Not Recovered/Not Resolved]
  - Rhinorrhoea [Recovered/Resolved]
  - Wheezing [Unknown]
  - Fatigue [Unknown]
  - Pain [Unknown]
  - Rib fracture [Unknown]
  - Cough [Recovered/Resolved]
  - Allergic cough [Not Recovered/Not Resolved]

NARRATIVE: CASE EVENT DATE: 20140310
